FAERS Safety Report 8872946 (Version 1)
Quarter: 2012Q4

REPORT INFORMATION
  Report Type: 
  Country: GB (occurrence: GB)
  Receive Date: 20121029
  Receipt Date: 20121029
  Transmission Date: 20130627
  Serious: Yes (Other)
  Sender: FDA-Public Use
  Company Number: PHHY2012GB094955

PATIENT
  Age: 68 Year
  Sex: Female
  Weight: 76 kg

DRUGS (5)
  1. GABAPENTIN [Suspect]
     Route: 048
     Dates: start: 20120914, end: 20120928
  2. SIMVASTATIN [Concomitant]
     Indication: CARDIAC VALVE DISEASE
     Route: 048
     Dates: start: 2009
  3. SOTALOL [Concomitant]
     Indication: HYPERTENSION
     Route: 048
     Dates: start: 2010
  4. TOLTERODINE [Concomitant]
     Route: 048
     Dates: start: 2009
  5. WARFARIN [Concomitant]
     Indication: ATRIAL FIBRILLATION
     Route: 048

REACTIONS (3)
  - Affective disorder [Recovering/Resolving]
  - Dizziness [Recovering/Resolving]
  - Depressed mood [Recovering/Resolving]
